FAERS Safety Report 19225375 (Version 1)
Quarter: 2021Q2

REPORT INFORMATION
  Report Type: Other
  Country: JP (occurrence: JP)
  Receive Date: 20210505
  Receipt Date: 20210505
  Transmission Date: 20210717
  Serious: Yes (Death, Life-Threatening, Hospitalization, Other)
  Sender: FDA-Public Use
  Company Number: JP-VALIDUS PHARMACEUTICALS LLC-JP-2021VAL001162

PATIENT

DRUGS (31)
  1. METHYLPREDNISOLONE ACEPONATE [Suspect]
     Active Substance: METHYLPREDNISOLONE ACEPONATE
     Indication: FEBRILE NEUTROPENIA
     Dosage: UNK
     Route: 065
  2. CISPLATIN. [Suspect]
     Active Substance: CISPLATIN
     Indication: PLASMA CELL MYELOMA
     Dosage: 7 MG, UNK
     Route: 041
     Dates: start: 20151110, end: 20151110
  3. FARYDAK [Suspect]
     Active Substance: PANOBINOSTAT
     Dosage: 20 MG, QD (6 DOSES PER CYCLE);
     Route: 065
     Dates: start: 20151006, end: 20151026
  4. ALPHA?ARBUTIN [Concomitant]
     Indication: PRODUCT USED FOR UNKNOWN INDICATION
     Dosage: UNK
     Dates: end: 20151129
  5. JUVELA N [Concomitant]
     Active Substance: TOCOPHERYL NICOTINATE, D-.ALPHA.
     Indication: PRODUCT USED FOR UNKNOWN INDICATION
     Dosage: UNK
     Dates: end: 20151028
  6. BUFFERIN L [Concomitant]
     Indication: PRODUCT USED FOR UNKNOWN INDICATION
     Dosage: UNK
     Dates: end: 20151109
  7. BORTEZOMIB. [Suspect]
     Active Substance: BORTEZOMIB
     Indication: PLASMA CELL MYELOMA
     Dosage: 1.3 MG/M2, QW;
     Route: 058
     Dates: start: 20151006, end: 20151028
  8. FUROSEMIDE. [Suspect]
     Active Substance: FUROSEMIDE
     Indication: RENAL IMPAIRMENT
     Dosage: 120 MG, QD
     Route: 065
     Dates: start: 20151109
  9. IRRADIATED RED BLOOD CELLS?LEUKOCYTES REDUCED [Concomitant]
     Active Substance: HUMAN RED BLOOD CELL
     Indication: PRODUCT USED FOR UNKNOWN INDICATION
     Dosage: UNK
     Dates: start: 20151110, end: 20151120
  10. ASPARA?CA [Concomitant]
     Active Substance: CALCIUM ASPARTATE
     Indication: PRODUCT USED FOR UNKNOWN INDICATION
     Dosage: UNK
     Dates: start: 20151109, end: 20151129
  11. VIRCLOX [Concomitant]
     Indication: PRODUCT USED FOR UNKNOWN INDICATION
     Dosage: UNK
     Dates: end: 20151130
  12. ARGAMATE [Concomitant]
     Active Substance: CALCIUM POLYSTYRENE SULFONATE
     Indication: PRODUCT USED FOR UNKNOWN INDICATION
     Dosage: UNK
     Dates: start: 20151109, end: 20151110
  13. FUROSEMIDE. [Suspect]
     Active Substance: FUROSEMIDE
     Indication: TUMOUR LYSIS SYNDROME
     Dosage: UNK
     Route: 065
  14. ENDOXAN                            /00021101/ [Suspect]
     Active Substance: CYCLOPHOSPHAMIDE
     Indication: PLASMA CELL MYELOMA
     Dosage: 600 MG, UNK
     Route: 065
     Dates: start: 20151110, end: 20151110
  15. ETOPOSIDE. [Suspect]
     Active Substance: ETOPOSIDE
     Indication: PLASMA CELL MYELOMA
     Dosage: 60 MG, UNK
     Route: 041
     Dates: start: 20151110, end: 20151110
  16. DECAPRYN [Suspect]
     Active Substance: DOXYLAMINE SUCCINATE
     Dosage: 20 UNK, UNK
     Route: 048
     Dates: start: 20151006, end: 20151029
  17. CUBICIN [Suspect]
     Active Substance: DAPTOMYCIN
     Indication: ENTEROCOCCAL INFECTION
     Dosage: 282 MG, UNK
     Route: 065
     Dates: start: 20151202, end: 20151202
  18. FARYDAK [Suspect]
     Active Substance: PANOBINOSTAT
     Indication: PLASMA CELL MYELOMA
     Dosage: 20 MG, QD (3 DOSES PER CYCLE);
     Route: 048
     Dates: start: 20151026, end: 20151101
  19. NOVOLIN 30R                        /00030501/ [Suspect]
     Active Substance: INSULIN HUMAN
     Indication: DIABETES MELLITUS
     Dosage: 2 TO 14 IU
     Route: 065
  20. THALED [Suspect]
     Active Substance: THALIDOMIDE
     Indication: PLASMA CELL MYELOMA
     Dosage: 100 MG, QD
     Route: 048
     Dates: start: 20151005, end: 20151101
  21. TRAMADOL HYDROCHLORIDE. [Concomitant]
     Active Substance: TRAMADOL HYDROCHLORIDE
     Indication: PRODUCT USED FOR UNKNOWN INDICATION
     Dosage: UNK
     Dates: end: 20151129
  22. METHYLPREDNISOLONE ACEPONATE [Suspect]
     Active Substance: METHYLPREDNISOLONE ACEPONATE
     Indication: PNEUMONIA
     Dosage: 80 MG, UNK
     Route: 065
     Dates: start: 20151125
  23. METHYLPREDNISOLONE ACEPONATE [Suspect]
     Active Substance: METHYLPREDNISOLONE ACEPONATE
     Indication: BLOOD LACTATE DEHYDROGENASE INCREASED
     Dosage: 125 UNK, UNK
     Route: 065
     Dates: start: 20151115, end: 20151124
  24. DECAPRYN [Suspect]
     Active Substance: DOXYLAMINE SUCCINATE
     Indication: PLASMA CELL MYELOMA
     Dosage: 40 MG, UNK
     Route: 048
     Dates: start: 20151110, end: 20151112
  25. THALED [Suspect]
     Active Substance: THALIDOMIDE
     Dosage: 100 UNK
     Route: 065
     Dates: start: 20151104, end: 20151130
  26. METHYCOBAL [Concomitant]
     Active Substance: METHYLCOBALAMIN
     Indication: PRODUCT USED FOR UNKNOWN INDICATION
     Dosage: UNK
     Dates: end: 20151028
  27. KALIMATE [Concomitant]
     Active Substance: CALCIUM POLYSTYRENE SULFONATE
     Indication: PRODUCT USED FOR UNKNOWN INDICATION
     Dosage: UNK
     Dates: start: 20151110, end: 20151114
  28. BAKTAR [Concomitant]
     Active Substance: SULFAMETHOXAZOLE\TRIMETHOPRIM
     Indication: PRODUCT USED FOR UNKNOWN INDICATION
     Dosage: UNK
     Dates: end: 20151109
  29. ZOLAMOX [Concomitant]
     Indication: PRODUCT USED FOR UNKNOWN INDICATION
     Dosage: UNK
     Dates: end: 20151129
  30. FUROSEMIDE. [Suspect]
     Active Substance: FUROSEMIDE
     Indication: HYPERPHOSPHATAEMIA
  31. BITAFANT TOWA [Concomitant]
     Indication: PRODUCT USED FOR UNKNOWN INDICATION
     Dosage: UNK
     Dates: start: 20151028, end: 20151104

REACTIONS (41)
  - Malignant neoplasm progression [Fatal]
  - Oxygen saturation decreased [Fatal]
  - Hyperphosphataemia [Fatal]
  - Febrile neutropenia [Fatal]
  - Pneumonia [Fatal]
  - Diabetes mellitus [Fatal]
  - Pancytopenia [Fatal]
  - General physical health deterioration [Fatal]
  - Blood creatinine increased [Fatal]
  - Platelet count decreased [Fatal]
  - Hyperglycaemia [Fatal]
  - Arrhythmia [Fatal]
  - Dysphagia [Fatal]
  - Abdominal pain upper [Fatal]
  - Hyperuricaemia [Fatal]
  - Drug ineffective [Fatal]
  - Constipation [Fatal]
  - Plasma cell myeloma [Fatal]
  - Systemic mycosis [Fatal]
  - Tumour lysis syndrome [Fatal]
  - Neutrophil count decreased [Fatal]
  - Loss of consciousness [Fatal]
  - Inflammation [Fatal]
  - Renal impairment [Fatal]
  - Hypercalcaemia [Fatal]
  - Thirst [Fatal]
  - Hypocalcaemia [Fatal]
  - Nausea [Fatal]
  - Renal failure [Fatal]
  - Enterococcal infection [Fatal]
  - Blood lactate dehydrogenase increased [Fatal]
  - Hepatic function abnormal [Fatal]
  - Blood potassium decreased [Fatal]
  - Sinus arrest [Fatal]
  - Electrolyte imbalance [Fatal]
  - Pyrexia [Fatal]
  - Anaemia [Fatal]
  - Pyrexia [Fatal]
  - Malaise [Fatal]
  - Abdominal pain [Fatal]
  - Hyperuricaemia [Fatal]

NARRATIVE: CASE EVENT DATE: 20151006
